FAERS Safety Report 8351762 (Version 2)
Quarter: 2014Q3

REPORT INFORMATION
  Report Type: Spontaneous
  Country: US (occurrence: US)
  Receive Date: 20120124
  Receipt Date: 20140721
  Transmission Date: 20150326
  Serious: Yes (Hospitalization)
  Sender: FDA-Public Use
  Company Number: US-GLAXOSMITHKLINE-B0715638A

PATIENT
  Sex: Female

DRUGS (1)
  1. AVANDIA [Suspect]
     Active Substance: ROSIGLITAZONE MALEATE
     Indication: DIABETES MELLITUS
     Dosage: 4MG PER DAY
     Route: 048
     Dates: start: 20010504, end: 20050301

REACTIONS (6)
  - Hypoaesthesia [Unknown]
  - Cerebrovascular accident [Not Recovered/Not Resolved]
  - Amnesia [Unknown]
  - Thyroid disorder [Unknown]
  - Chest pain [Unknown]
  - Migraine [Unknown]
